FAERS Safety Report 19873568 (Version 2)
Quarter: 2021Q4

REPORT INFORMATION
  Report Type: Report from Study
  Country: US (occurrence: US)
  Receive Date: 20210922
  Receipt Date: 20211006
  Transmission Date: 20220303
  Serious: Yes (Hospitalization)
  Sender: FDA-Public Use
  Company Number: US-EISAI MEDICAL RESEARCH-EC-2021-099461

PATIENT
  Age: 85 Year
  Sex: Male

DRUGS (3)
  1. LENVIMA [Suspect]
     Active Substance: LENVATINIB
     Indication: Renal cell carcinoma
     Route: 048
     Dates: start: 20210905, end: 20210906
  2. LENVIMA [Suspect]
     Active Substance: LENVATINIB
     Route: 048
     Dates: start: 202109, end: 202109
  3. KEYTRUDA [Concomitant]
     Active Substance: PEMBROLIZUMAB
     Indication: Renal cell carcinoma
     Route: 041
     Dates: end: 202109

REACTIONS (7)
  - Dehydration [Unknown]
  - Anaemia [Unknown]
  - Blood potassium decreased [Unknown]
  - Asthenia [Unknown]
  - Lethargy [Unknown]
  - Heart rate increased [Recovering/Resolving]
  - Blood pressure increased [Recovering/Resolving]

NARRATIVE: CASE EVENT DATE: 20210906
